FAERS Safety Report 7767866-9 (Version None)
Quarter: 2011Q3

REPORT INFORMATION
  Report Type: 
  Country: None (occurrence: None)
  Receive Date: 20110922
  Receipt Date: 20100923
  Transmission Date: 20111222
  Serious: No
  Sender: FDA-Public Use
  Company Number: US-ASTRAZENECA-2010SE35905

PATIENT
  Age: 53 Year
  Sex: Male
  Weight: 72.6 kg

DRUGS (2)
  1. PROPRANOLOL [Concomitant]
     Route: 065
  2. SEROQUEL XR [Suspect]
     Indication: SCHIZOPHRENIA, PARANOID TYPE
     Route: 048
     Dates: start: 20090101

REACTIONS (3)
  - HALLUCINATION [None]
  - AGITATION [None]
  - VERBAL ABUSE [None]
